FAERS Safety Report 5275518-2 (Version None)
Quarter: 2007Q1

REPORT INFORMATION
  Report Type: 
  Country: None (occurrence: None)
  Receive Date: 20070326
  Receipt Date: 20070313
  Transmission Date: 20070707
  Serious: Yes (Hospitalization)
  Sender: FDA-Public Use
  Company Number: HQWYE842218JAN07

PATIENT
  Sex: Female
  Weight: 43 kg

DRUGS (11)
  1. ENBREL [Suspect]
     Indication: RHEUMATOID ARTHRITIS
     Route: 058
     Dates: start: 20051018, end: 20060316
  2. ENBREL [Suspect]
     Route: 058
     Dates: start: 20060419, end: 20070108
  3. SELTOUCH [Concomitant]
     Indication: RHEUMATOID ARTHRITIS
     Dosage: UNSPECIFIED DOSE TAP
  4. LOXONIN [Concomitant]
     Indication: PAIN
     Route: 048
     Dates: start: 19990107
  5. HIRUDOID [Concomitant]
     Indication: RASH
     Dosage: UNSPECIFIED TOPICAL OINTMENT
     Dates: start: 20070110
  6. LASIX [Concomitant]
     Indication: OEDEMA PERIPHERAL
     Route: 048
     Dates: start: 20060823
  7. BAKTAR [Concomitant]
     Indication: INFECTION PROPHYLAXIS
     Route: 048
     Dates: start: 20061101
  8. JUVELA [Concomitant]
     Route: 048
     Dates: start: 20070110
  9. RINDERON-V [Concomitant]
     Indication: RASH
     Dosage: UNSPECIFIED TOPICAL OINTMENT
     Dates: start: 20070110
  10. ALFACALCIDOL [Concomitant]
     Indication: OSTEOPOROSIS
     Route: 048
     Dates: start: 20060912
  11. SELBEX [Concomitant]
     Indication: GASTRIC ULCER
     Route: 048
     Dates: start: 19990107

REACTIONS (1)
  - SARCOIDOSIS [None]
